FAERS Safety Report 4658416-4 (Version None)
Quarter: 2005Q2

REPORT INFORMATION
  Report Type: 
  Country: None (occurrence: None)
  Receive Date: 20050509
  Receipt Date: 20050426
  Transmission Date: 20051028
  Serious: Yes (Hospitalization)
  Sender: FDA-Public Use
  Company Number: 2005066177

PATIENT
  Age: 66 Year
  Sex: Male

DRUGS (9)
  1. CELECOXIB (CELECOXIB) [Suspect]
     Indication: POLYP COLORECTAL
     Dosage: 400 MG (200 MG, 2 IN 1 D),ORAL
     Route: 048
     Dates: start: 20020311
  2. BUPROPION HYDROCHLORIDE [Concomitant]
  3. ATENOLOL [Concomitant]
  4. ATORVASTATIN CALCIUM [Concomitant]
  5. PIOGLITAZONE HCL [Concomitant]
  6. METFORMIN HCL [Concomitant]
  7. INSULIN [Concomitant]
  8. ASPIRIN [Concomitant]
  9. ACETAMINOPHEN [Concomitant]

REACTIONS (1)
  - CORONARY ARTERY OCCLUSION [None]
